FAERS Safety Report 15591465 (Version 4)
Quarter: 2019Q4

REPORT INFORMATION
  Report Type: Spontaneous
  Country: US (occurrence: US)
  Receive Date: 20181106
  Receipt Date: 20191017
  Transmission Date: 20200122
  Serious: No
  Sender: FDA-Public Use
  Company Number: US-PFIZER INC-2018441799

PATIENT
  Age: 84 Year
  Sex: Female

DRUGS (10)
  1. DEPO-MEDROL [Suspect]
     Active Substance: METHYLPREDNISOLONE ACETATE
     Indication: ARTHROPATHY
     Dosage: UNK
     Route: 048
  2. DEPO-MEDROL [Suspect]
     Active Substance: METHYLPREDNISOLONE ACETATE
     Indication: OSTEOARTHRITIS
  3. FORTEO [Suspect]
     Active Substance: TERIPARATIDE
     Dosage: UNK
  4. LEVAQUIN [Suspect]
     Active Substance: LEVOFLOXACIN
     Dosage: UNK
  5. DEPO-MEDROL [Suspect]
     Active Substance: METHYLPREDNISOLONE ACETATE
     Indication: TENDONITIS
  6. CELESTONE [Suspect]
     Active Substance: BETAMETHASONE
     Indication: ARTHROPATHY
     Dosage: UNK
  7. CELESTONE [Suspect]
     Active Substance: BETAMETHASONE
     Indication: TENDONITIS
  8. DEPO-MEDROL [Suspect]
     Active Substance: METHYLPREDNISOLONE ACETATE
     Indication: BURSITIS
  9. CELESTONE [Suspect]
     Active Substance: BETAMETHASONE
     Indication: OSTEOARTHRITIS
  10. CELESTONE [Suspect]
     Active Substance: BETAMETHASONE
     Indication: BURSITIS

REACTIONS (8)
  - Disease recurrence [Not Recovered/Not Resolved]
  - Peripheral swelling [Not Recovered/Not Resolved]
  - Off label use [Unknown]
  - Hypertension [Not Recovered/Not Resolved]
  - Blood pressure abnormal [Recovered/Resolved]
  - Joint swelling [Not Recovered/Not Resolved]
  - Product use issue [Unknown]
  - Gastrooesophageal reflux disease [Not Recovered/Not Resolved]
